FAERS Safety Report 6536955-9 (Version None)
Quarter: 2010Q1

REPORT INFORMATION
  Report Type: 
  Country: None (occurrence: None)
  Receive Date: 20100105
  Receipt Date: 20091215
  Transmission Date: 20100710
  Serious: Yes (Hospitalization)
  Sender: FDA-Public Use
  Company Number: THQ2009A05148

PATIENT
  Age: 58 Year
  Sex: Female

DRUGS (10)
  1. ACTOS [Suspect]
     Indication: DRUG USE FOR UNKNOWN INDICATION
     Dosage: 15 MG
     Dates: start: 20090311
  2. BYETTA [Suspect]
     Indication: DRUG USE FOR UNKNOWN INDICATION
     Dosage: 10 MCG (5 MCG, 2 IN 1 D), 20 MCG
     Dates: start: 20070828
  3. METFORMIN [Suspect]
     Indication: DRUG USE FOR UNKNOWN INDICATION
     Dosage: 2250 MG
     Dates: start: 20040201
  4. VALSARTAN AND HYDROCHLOROTHIAZIDE [Concomitant]
  5. MOXONIDIN (MOXONIDINE) [Concomitant]
  6. OMEPRAZOLE [Concomitant]
  7. TOLTERODINE TARTRATE [Concomitant]
  8. SIMVASTATIN [Concomitant]
  9. GINGIUM (GINKGO BILOBA EXTRACT) [Concomitant]
  10. VOLTAREN [Concomitant]

REACTIONS (2)
  - FOOT DEFORMITY [None]
  - SWELLING [None]
